FAERS Safety Report 4392944-4 (Version None)
Quarter: 2004Q3

REPORT INFORMATION
  Report Type: 
  Country: None (occurrence: None)
  Receive Date: 20040702
  Receipt Date: 20040621
  Transmission Date: 20050211
  Serious: Yes (Other)
  Sender: FDA-Public Use
  Company Number: 2004041971

PATIENT
  Age: 47 Year
  Sex: Male

DRUGS (2)
  1. NORVASC [Suspect]
     Indication: ESSENTIAL HYPERTENSION
     Dosage: ORAL
     Route: 048
     Dates: start: 20040406, end: 20040410
  2. BLOPRESS PLUS (CANDESARTAN CILEXETIL, HYDROCHLOROTHIAZIDE) [Concomitant]

REACTIONS (5)
  - APATHY [None]
  - DEPRESSION [None]
  - DISTURBANCE IN ATTENTION [None]
  - IMPAIRED DRIVING ABILITY [None]
  - INDIFFERENCE [None]
